FAERS Safety Report 4946852-8 (Version None)
Quarter: 2006Q1

REPORT INFORMATION
  Report Type: 
  Country: None (occurrence: None)
  Receive Date: 20060317
  Receipt Date: 20060309
  Transmission Date: 20060701
  Serious: Yes (Other)
  Sender: FDA-Public Use
  Company Number: 2006AP01216

PATIENT
  Age: 27795 Day
  Sex: Male

DRUGS (14)
  1. CRESTOR [Suspect]
     Indication: HYPERCHOLESTEROLAEMIA
     Route: 048
     Dates: start: 20051221
  2. NU-LOTAN [Concomitant]
     Route: 048
  3. ZYLORIC [Concomitant]
     Route: 048
  4. OMEPRAL [Concomitant]
     Route: 048
  5. EUGLUCON [Concomitant]
     Route: 048
  6. CARDENALIN [Concomitant]
     Route: 048
  7. AMLODIN [Concomitant]
     Route: 048
  8. PANALDINE [Concomitant]
     Indication: THROMBOSIS PROPHYLAXIS
     Route: 048
  9. PRORENAL [Concomitant]
     Route: 048
  10. SIGMART [Concomitant]
     Route: 048
  11. ASPIRIN [Concomitant]
     Indication: THROMBOSIS PROPHYLAXIS
     Route: 048
  12. PURSENNID [Concomitant]
     Route: 048
  13. MEVALOTIN [Concomitant]
     Dosage: PAST DRUG HISTORY
  14. NITOROL [Concomitant]
     Dosage: PAST DRUG HISTORY

REACTIONS (6)
  - ATELECTASIS [None]
  - CARDIAC FAILURE [None]
  - CEREBRAL ARTERY OCCLUSION [None]
  - CEREBRAL INFARCTION [None]
  - CORONARY ARTERY RESTENOSIS [None]
  - PLEURAL ADHESION [None]
